FAERS Safety Report 14583235 (Version 1)
Quarter: 2018Q1

REPORT INFORMATION
  Report Type: Spontaneous
  Country: US (occurrence: US)
  Receive Date: 20180228
  Receipt Date: 20180228
  Transmission Date: 20180509
  Serious: No
  Sender: FDA-Public Use
  Company Number: US-TAIHO ONCOLOGY INC-EU-2018-00323

PATIENT
  Age: 54 Year
  Sex: Female

DRUGS (12)
  1. LONSURF [Suspect]
     Active Substance: TIPIRACIL HYDROCHLORIDE\TRIFLURIDINE
     Indication: COLON CANCER
     Route: 048
     Dates: start: 20171103
  2. PROCHLORPERAZINE MALEATE. [Concomitant]
     Active Substance: PROCHLORPERAZINE MALEATE
     Dosage: NI
  3. CIPRO [Concomitant]
     Active Substance: CIPROFLOXACIN HYDROCHLORIDE
     Dosage: NI
  4. CROMOGLICATE SODIUM [Concomitant]
     Active Substance: CROMOLYN SODIUM
     Dosage: NI
  5. MARINOL (ALLOPURINOL) [Concomitant]
     Active Substance: ALLOPURINOL
     Dosage: NI
  6. KLONOPIN [Concomitant]
     Active Substance: CLONAZEPAM
     Dosage: NI
  7. EPINEPHRINE. [Concomitant]
     Active Substance: EPINEPHRINE
     Dosage: NI
  8. ATIVAN [Concomitant]
     Active Substance: LORAZEPAM
     Dosage: NI
  9. PEPCID [Concomitant]
     Active Substance: FAMOTIDINE
     Dosage: NI
  10. OXYCODONE [Concomitant]
     Active Substance: OXYCODONE
     Dosage: NI
  11. ONDANSETRON [Concomitant]
     Active Substance: ONDANSETRON
     Dosage: NI
  12. DOCUSATE CALCIUM. [Concomitant]
     Active Substance: DOCUSATE CALCIUM
     Dosage: NI

REACTIONS (1)
  - Vomiting [Unknown]

NARRATIVE: CASE EVENT DATE: 201711
